FAERS Safety Report 5875694-4 (Version None)
Quarter: 2008Q3

REPORT INFORMATION
  Report Type: 
  Country: None (occurrence: None)
  Receive Date: 20080904
  Receipt Date: 20080825
  Transmission Date: 20090109
  Serious: No
  Sender: FDA-Public Use
  Company Number: 08H-163-0314805-00

PATIENT
  Age: 47 Year
  Sex: Female
  Weight: 87 kg

DRUGS (2)
  1. KETAMINE HCL [Suspect]
     Indication: DRUG USE FOR UNKNOWN INDICATION
     Dosage: 2 MG, NOT REPORTED, INTRAVENOUS
     Route: 042
     Dates: start: 20080819, end: 20080820
  2. MORPHINE SULFATE INJ [Suspect]
     Indication: DRUG USE FOR UNKNOWN INDICATION
     Dosage: INTRAVENOUS
     Route: 042
     Dates: start: 20080819, end: 20080820

REACTIONS (3)
  - INCORRECT DOSE ADMINISTERED [None]
  - UNRESPONSIVE TO STIMULI [None]
  - WRONG TECHNIQUE IN DRUG USAGE PROCESS [None]
